FAERS Safety Report 6531253-1 (Version None)
Quarter: 2010Q1

REPORT INFORMATION
  Report Type: 
  Country: None (occurrence: None)
  Receive Date: 20100108
  Receipt Date: 20091230
  Transmission Date: 20100710
  Serious: Yes (Other)
  Sender: FDA-Public Use
  Company Number: DE-ASTRAZENECA-2009SE33931

PATIENT

DRUGS (1)
  1. ATACAND [Suspect]
     Route: 048

REACTIONS (2)
  - INCREASED BRONCHIAL SECRETION [None]
  - LUNG INFECTION [None]
